FAERS Safety Report 19974487 (Version 1)
Quarter: 2021Q4

REPORT INFORMATION
  Report Type: Spontaneous
  Country: GB (occurrence: GB)
  Receive Date: 20211020
  Receipt Date: 20211020
  Transmission Date: 20220303
  Serious: Yes (Life-Threatening, Hospitalization, Disabling, Other)
  Sender: FDA-Public Use
  Company Number: None

PATIENT
  Age: 45 Year
  Sex: Male
  Weight: 63.5 kg

DRUGS (2)
  1. VARENICLINE TARTRATE [Suspect]
     Active Substance: VARENICLINE TARTRATE
     Indication: Smoking cessation therapy
     Dosage: UNKNOWN
     Route: 048
     Dates: start: 20100910, end: 20101010
  2. VARENICLINE TARTRATE [Suspect]
     Active Substance: VARENICLINE TARTRATE
     Dosage: UNKNOWN
     Dates: start: 20101010, end: 20101110

REACTIONS (2)
  - Acute myeloid leukaemia [Recovered/Resolved with Sequelae]
  - Neoplasm malignant [Recovered/Resolved with Sequelae]

NARRATIVE: CASE EVENT DATE: 20130418
